FAERS Safety Report 4954626-7 (Version None)
Quarter: 2006Q1

REPORT INFORMATION
  Report Type: 
  Country: None (occurrence: None)
  Receive Date: 20060327
  Receipt Date: 20060316
  Transmission Date: 20060701
  Serious: Yes (Death)
  Sender: FDA-Public Use
  Company Number: CA-ROCHE-440535

PATIENT
  Age: 62 Year
  Sex: Male

DRUGS (15)
  1. MYCOPHENOLATE MOFETIL [Suspect]
     Indication: DRUG USE FOR UNKNOWN INDICATION
     Route: 065
  2. RAPAMUNE [Suspect]
     Indication: DRUG USE FOR UNKNOWN INDICATION
     Route: 048
  3. PREDNISONE [Suspect]
     Indication: DRUG USE FOR UNKNOWN INDICATION
     Route: 065
  4. DACLIZUMAB [Concomitant]
  5. INSULIN [Concomitant]
  6. RAMIPRIL [Concomitant]
  7. METOPROLOL [Concomitant]
  8. AVANDIA [Concomitant]
  9. EPOGEN [Concomitant]
     Route: 065
  10. SIMVASTATIN [Concomitant]
  11. ASPIRIN [Concomitant]
  12. PROGRAF [Concomitant]
  13. DOMPERIDONE [Concomitant]
  14. LEVOTHYROXINE SODIUM [Concomitant]
  15. RENAGEL [Concomitant]

REACTIONS (24)
  - ANURIA [None]
  - CANDIDIASIS [None]
  - CHEST PAIN [None]
  - CLOSTRIDIUM COLITIS [None]
  - DEEP VEIN THROMBOSIS [None]
  - FUNGAL INFECTION [None]
  - HAEMATEMESIS [None]
  - HAEMATOMA [None]
  - HAEMATURIA [None]
  - HAEMOGLOBIN DECREASED [None]
  - HYPOTENSION [None]
  - HYPOXIA [None]
  - LEUKOPENIA [None]
  - MELAENA [None]
  - METABOLIC ACIDOSIS [None]
  - MULTI-ORGAN FAILURE [None]
  - MYOCARDIAL INFARCTION [None]
  - ODYNOPHAGIA [None]
  - OESOPHAGITIS [None]
  - PANCYTOPENIA [None]
  - RENAL TUBULAR NECROSIS [None]
  - RESPIRATORY ACIDOSIS [None]
  - RETROPERITONEAL HAEMORRHAGE [None]
  - THROMBOCYTOPENIA [None]
